FAERS Safety Report 4747211-3 (Version None)
Quarter: 2005Q3

REPORT INFORMATION
  Report Type: 
  Country: None (occurrence: None)
  Receive Date: 20050816
  Receipt Date: 20050531
  Transmission Date: 20060218
  Serious: Yes (Hospitalization)
  Sender: FDA-Public Use
  Company Number: S05-USA-00641-01

PATIENT
  Age: 80 Year
  Sex: Male

DRUGS (13)
  1. NAMENDA [Suspect]
     Indication: DEMENTIA
     Dosage: 15 MG QD PO
     Route: 048
     Dates: start: 20050119, end: 20050124
  2. NAMENDA [Suspect]
     Indication: DEMENTIA
     Dosage: 5 MG QD PO
     Route: 048
     Dates: start: 20050105, end: 20050111
  3. NAMENDA [Suspect]
     Indication: DEMENTIA
     Dosage: 5 MG BID PO
     Route: 048
     Dates: start: 20050112, end: 20050118
  4. NAMENDA [Suspect]
     Indication: DEMENTIA
     Dosage: 10 MG BID PO
     Route: 048
  5. ARICEPT [Concomitant]
  6. NEURONTIN [Concomitant]
  7. CARBIDOPA [Concomitant]
  8. CARBIDOPA CR [Concomitant]
  9. ALLEGRA (FEXOFANADINE HYDROCHLORIDE) [Concomitant]
  10. AMANTADINE [Concomitant]
  11. ASPIRIN [Concomitant]
  12. FLOMAX [Concomitant]
  13. NADOLAL [Concomitant]

REACTIONS (10)
  - CONFUSIONAL STATE [None]
  - DEHYDRATION [None]
  - FALL [None]
  - GAIT DISTURBANCE [None]
  - HALLUCINATION, VISUAL [None]
  - HIP FRACTURE [None]
  - INSOMNIA [None]
  - MUSCLE SPASMS [None]
  - MUSCLE STRAIN [None]
  - URINARY TRACT INFECTION [None]
